FAERS Safety Report 9848547 (Version 1)
Quarter: 2013Q4

REPORT INFORMATION
  Report Type: Spontaneous
  Country: US (occurrence: None)
  Receive Date: 20131224
  Receipt Date: 20131224
  Transmission Date: 20140711
  Serious: Yes (Other)
  Sender: FDA-Public Use
  Company Number: PHEH2013US008777

PATIENT
  Age: 18 Year
  Sex: Male
  Weight: 47 kg

DRUGS (7)
  1. EXJADE (*CGP 72670*) DISPERSIBLE TABLET [Suspect]
     Indication: SICKLE CELL ANAEMIA
     Dosage: 1500 MG , UNK, ORAL
     Route: 048
  2. SINGULAIR (MONELEUKAST SODIUM) [Concomitant]
  3. FOLIC ACID (FOLIC ACID) [Concomitant]
  4. LORATADINE (LORATADINE) (LORATADINE) [Concomitant]
  5. HYDROXYUREA (HYDROXYUREA) [Concomitant]
  6. ADVAIR (FLUTICASONE PROPIONATE , SALMETEROL XINAFORTE) [Concomitant]
  7. FLONASE (FLUTICASONE PROPIONATE) [Concomitant]

REACTIONS (1)
  - Cataract [None]
